FAERS Safety Report 5816917-7 (Version None)
Quarter: 2008Q3

REPORT INFORMATION
  Report Type: 
  Country: None (occurrence: None)
  Receive Date: 20080722
  Receipt Date: 20080712
  Transmission Date: 20090109
  Serious: Yes (Hospitalization)
  Sender: FDA-Public Use
  Company Number: TW-BAYER-200822427GPV

PATIENT
  Age: 74 Year
  Sex: Male

DRUGS (3)
  1. CEFTRIAXONE [Suspect]
     Indication: PERITONITIS BACTERIAL
  2. CIPROFLOXACIN [Suspect]
     Indication: PNEUMONIA
     Route: 042
  3. VANCOMYCIN HCL [Suspect]
     Indication: PNEUMONIA
     Route: 042

REACTIONS (2)
  - FUNGAL PERITONITIS [None]
  - PANCREAS INFECTION [None]
